FAERS Safety Report 13453043 (Version 2)
Quarter: 2017Q2

REPORT INFORMATION
  Report Type: Spontaneous
  Country: CH (occurrence: CH)
  Receive Date: 20170418
  Receipt Date: 20170503
  Transmission Date: 20170830
  Serious: Yes (Hospitalization)
  Sender: FDA-Public Use
  Company Number: CH-PFIZER INC-2017160386

PATIENT
  Age: 80 Year
  Sex: Male
  Weight: 97.9 kg

DRUGS (19)
  1. ASPIRIN CARDIO [Suspect]
     Active Substance: ASPIRIN
     Dosage: 100 MG, 1X/DAY (1-0-0-0)
     Route: 048
     Dates: end: 20170317
  2. ASPIRIN CARDIO [Suspect]
     Active Substance: ASPIRIN
     Dosage: 100 MG, 1X/DAY (1-0-0-0)
     Route: 048
     Dates: start: 20170319
  3. CO-APROVEL [Suspect]
     Active Substance: HYDROCHLOROTHIAZIDE\IRBESARTAN
     Dosage: 1 DF, 1X/DAY (150 /12.5 MG 1/DAY, 1-0-0-0)
     Route: 048
     Dates: start: 20170319
  4. JANUMET [Suspect]
     Active Substance: METFORMIN HYDROCHLORIDE\SITAGLIPTIN PHOSPHATE
     Dosage: 1 DF, 2X/DAY
     Route: 048
     Dates: start: 20170318, end: 20170318
  5. CO-APROVEL [Suspect]
     Active Substance: HYDROCHLOROTHIAZIDE\IRBESARTAN
     Dosage: 1 DF, 1X/DAY (150 /12.5 MG 1/DAY, 1-0-0-0)
     Route: 048
     Dates: end: 20170317
  6. CARVEDILOL SANDOZ [Suspect]
     Active Substance: CARVEDILOL
     Dosage: 18.75 MG/DAY, 2-0-1-0
     Route: 048
     Dates: end: 20170317
  7. CARVEDILOL SANDOZ [Suspect]
     Active Substance: CARVEDILOL
     Dosage: 5 TABLETS/DAY
     Route: 048
     Dates: start: 20170318, end: 20170318
  8. JANUMET [Suspect]
     Active Substance: METFORMIN HYDROCHLORIDE\SITAGLIPTIN PHOSPHATE
     Dosage: 1 DF, 1X/DAY (1000/50 MG 1/DAY, 1-0-0-0)
     Route: 048
     Dates: start: 20170319
  9. DIAMICRON [Suspect]
     Active Substance: GLICLAZIDE
     Dosage: 90 MG, 1X/DAY (1+1/2-0-0-0)
     Route: 048
     Dates: start: 20170319
  10. JARDIANCE MET [Suspect]
     Active Substance: EMPAGLIFLOZIN\METFORMIN HYDROCHLORIDE
     Dosage: 1 DF, 1X/DAY (90 MG 1/DAY, 0-0-1-0)
     Route: 048
  11. JARDIANCE MET [Suspect]
     Active Substance: EMPAGLIFLOZIN\METFORMIN HYDROCHLORIDE
     Dosage: 1 DF, 1X/DAY (1000MG / 5MG  TAB PER DAY, 0-0-1-0)
  12. DIAMICRON [Suspect]
     Active Substance: GLICLAZIDE
     Dosage: 90 MG, 1X/DAY (1+1/2-0-0-0)
     Route: 048
     Dates: end: 20170317
  13. ASPIRIN CARDIO [Suspect]
     Active Substance: ASPIRIN
     Dosage: 100 MG, 2X/DAY
     Route: 048
     Dates: start: 20170318, end: 20170318
  14. APROVEL [Suspect]
     Active Substance: IRBESARTAN
     Dosage: 150 MG, 1X/DAY (0-0-1-0)
     Route: 048
  15. CARVEDILOL SANDOZ [Suspect]
     Active Substance: CARVEDILOL
     Dosage: 18.75 MG/DAY, 2-0-1-0
     Route: 048
     Dates: start: 20170319
  16. DIAMICRON [Suspect]
     Active Substance: GLICLAZIDE
     Dosage: 90 MG, 2X/DAY
     Route: 048
     Dates: start: 20170318, end: 20170318
  17. ATORVASTATIN CALCIUM. [Suspect]
     Active Substance: ATORVASTATIN CALCIUM
     Dosage: 40 MG, 1X/DAY (0-0-1-0)
     Route: 048
  18. CO-APROVEL [Suspect]
     Active Substance: HYDROCHLOROTHIAZIDE\IRBESARTAN
     Dosage: 1 DF, 2X/DAY
     Route: 048
     Dates: start: 20170318, end: 20170318
  19. JANUMET [Suspect]
     Active Substance: METFORMIN HYDROCHLORIDE\SITAGLIPTIN PHOSPHATE
     Dosage: 1 DF, 1X/DAY (1000/50 MG 1/DAY, 1-0-0-0)
     Route: 048
     Dates: end: 20170317

REACTIONS (2)
  - Drug administration error [Recovered/Resolved]
  - Hypokalaemia [Unknown]

NARRATIVE: CASE EVENT DATE: 20170318
